FAERS Safety Report 13285559 (Version 2)
Quarter: 2017Q1

REPORT INFORMATION
  Report Type: Report from Study
  Country: None (occurrence: ZA)
  Receive Date: 20170301
  Receipt Date: 20170313
  Transmission Date: 20170428
  Serious: Yes (Hospitalization)
  Sender: FDA-Public Use
  Company Number: ZA-ABBVIE-17P-143-1884246-00

PATIENT
  Age: 62 Year
  Sex: Male
  Weight: 59 kg

DRUGS (4)
  1. TENOFOVIR [Concomitant]
     Active Substance: TENOFOVIR
     Indication: BACK DISORDER
     Route: 065
  2. DARUNAVIR [Concomitant]
     Active Substance: DARUNAVIR
     Indication: HIV INFECTION
     Route: 048
     Dates: start: 20110913
  3. RITONAVIR. [Suspect]
     Active Substance: RITONAVIR
     Indication: HIV INFECTION
     Route: 048
     Dates: start: 20110913
  4. COMBIVIR (DOZRA) [Concomitant]
     Indication: HIV INFECTION

REACTIONS (1)
  - Acute kidney injury [Not Recovered/Not Resolved]

NARRATIVE: CASE EVENT DATE: 20170219
